FAERS Safety Report 23846761 (Version 1)
Quarter: 2024Q2

REPORT INFORMATION
  Report Type: Spontaneous
  Country: US (occurrence: US)
  Receive Date: 20240513
  Receipt Date: 20240513
  Transmission Date: 20240716
  Serious: No
  Sender: FDA-Public Use
  Company Number: US-PADAGIS-2024PAD00779

PATIENT

DRUGS (1)
  1. TRETINOIN [Suspect]
     Active Substance: TRETINOIN
     Indication: Skin disorder
     Dosage: UNK
     Route: 065
     Dates: start: 20231018, end: 202312

REACTIONS (6)
  - Condition aggravated [Unknown]
  - Application site scar [Unknown]
  - Depression [Unknown]
  - Emotional distress [Unknown]
  - Application site vesicles [Unknown]
  - Product use in unapproved indication [Unknown]

NARRATIVE: CASE EVENT DATE: 20231001
